FAERS Safety Report 16372360 (Version 1)
Quarter: 2019Q2

REPORT INFORMATION
  Report Type: Spontaneous
  Country: US (occurrence: US)
  Receive Date: 20190424
  Receipt Date: 20190424
  Transmission Date: 20190711
  Serious: Yes (Death)
  Sender: FDA-Public Use
  Company Number: None

PATIENT
  Age: 67 Year
  Sex: Male

DRUGS (15)
  1. EZETIMBE [Concomitant]
     Active Substance: EZETIMIBE
  2. SIMIVASTATIN [Concomitant]
  3. ESCITALOPRAM [Concomitant]
     Active Substance: ESCITALOPRAM OXALATE
  4. GLIMEPRIDE [Concomitant]
     Active Substance: GLIMEPIRIDE
  5. HUMALOG [Concomitant]
     Active Substance: INSULIN LISPRO
  6. PANTOPRAZOLE [Concomitant]
     Active Substance: PANTOPRAZOLE
  7. PREDNISONE. [Concomitant]
     Active Substance: PREDNISONE
  8. ATENOLOL. [Concomitant]
     Active Substance: ATENOLOL
  9. CANDERSARTAN [Concomitant]
  10. METFORMIN [Concomitant]
     Active Substance: METFORMIN HYDROCHLORIDE
  11. DUCOSATE [Concomitant]
  12. OXYBUTYNN [Concomitant]
  13. ESBRIET [Suspect]
     Active Substance: PIRFENIDONE
     Indication: IDIOPATHIC PULMONARY FIBROSIS
     Route: 048
     Dates: start: 20180526
  14. INVOKANA [Concomitant]
     Active Substance: CANAGLIFLOZIN
  15. TAMSULOSIN [Concomitant]
     Active Substance: TAMSULOSIN

REACTIONS (1)
  - Death [None]

NARRATIVE: CASE EVENT DATE: 2018
